FAERS Safety Report 25400445 (Version 1)
Quarter: 2025Q2

REPORT INFORMATION
  Report Type: Spontaneous
  Country: RU (occurrence: RU)
  Receive Date: 20250605
  Receipt Date: 20250605
  Transmission Date: 20250716
  Serious: Yes (Other)
  Sender: ROCHE
  Company Number: RU-ROCHE-10000299040

PATIENT
  Age: 58 Year
  Sex: Female

DRUGS (4)
  1. TRASTUZUMAB [Suspect]
     Active Substance: TRASTUZUMAB
     Indication: Invasive ductal breast carcinoma
     Dosage: TRASTUZUMAB 6 MG/KG IV ON DAY 1 Q3W UNTIL PROGRESSION OR UNACCEPTABLE TOXICITY.
     Route: 042
     Dates: start: 20221201, end: 20230323
  2. PERTUZUMAB [Suspect]
     Active Substance: PERTUZUMAB
     Indication: Invasive ductal breast carcinoma
     Dosage: PERTUZUMAB 420 MG IV ON DAY 1 Q3W
     Route: 042
     Dates: start: 20221201, end: 20230323
  3. ADO-TRASTUZUMAB EMTANSINE [Suspect]
     Active Substance: ADO-TRASTUZUMAB EMTANSINE
     Indication: Invasive ductal breast carcinoma
     Route: 065
     Dates: start: 20240314
  4. DOCETAXEL [Suspect]
     Active Substance: DOCETAXEL
     Indication: Invasive ductal breast carcinoma
     Route: 065
     Dates: start: 20221201, end: 20230323

REACTIONS (2)
  - Metastases to lung [Unknown]
  - Metastases to lymph nodes [Unknown]
